FAERS Safety Report 6550958-X (Version None)
Quarter: 2010Q1

REPORT INFORMATION
  Report Type: 
  Country: None (occurrence: None)
  Receive Date: 20100125
  Receipt Date: 20100118
  Transmission Date: 20100710
  Serious: Yes (Other)
  Sender: FDA-Public Use
  Company Number: JP-PFIZER INC-2010007545

PATIENT
  Age: 68 Year
  Sex: Female

DRUGS (3)
  1. GABAPEN [Suspect]
     Dosage: 200 MG, 3X/DAY
     Route: 048
     Dates: start: 20090101
  2. NORVASC [Suspect]
     Dosage: 2.5 MG, 1X/DAY
     Route: 048
  3. CARDENALIN [Suspect]
     Dosage: 0.5 MG, 1X/DAY
     Route: 048
     Dates: start: 20091001

REACTIONS (2)
  - DEAFNESS [None]
  - TINNITUS [None]
